FAERS Safety Report 10236488 (Version 2)
Quarter: 2014Q3

REPORT INFORMATION
  Report Type: Spontaneous
  Country: CH (occurrence: CH)
  Receive Date: 20140613
  Receipt Date: 20140711
  Transmission Date: 20150326
  Serious: Yes (Life-Threatening, Hospitalization, Other)
  Sender: FDA-Public Use
  Company Number: CH-ABBVIE-14P-151-1247004-00

PATIENT
  Age: 30 Year
  Sex: Male
  Weight: 102 kg

DRUGS (2)
  1. HUMIRA [Suspect]
     Active Substance: ADALIMUMAB
     Indication: PSORIASIS
  2. HUMIRA [Suspect]
     Active Substance: ADALIMUMAB
     Indication: PSORIASIS
     Dosage: EVERY TWO OR THREE MONTHS
     Route: 058
     Dates: start: 20110329, end: 20140401

REACTIONS (7)
  - Procedural haemorrhage [Unknown]
  - Angina pectoris [Recovered/Resolved]
  - Atrial septal defect [Unknown]
  - Low density lipoprotein increased [Unknown]
  - Myocardial infarction [Recovered/Resolved]
  - Acute myocardial infarction [Unknown]
  - Cardiovascular disorder [Unknown]

NARRATIVE: CASE EVENT DATE: 20140513
